FAERS Safety Report 18502919 (Version 1)
Quarter: 2020Q4

REPORT INFORMATION
  Report Type: Spontaneous
  Country: US (occurrence: US)
  Receive Date: 20201113
  Receipt Date: 20201113
  Transmission Date: 20210114
  Serious: Yes (Other)
  Sender: FDA-Public Use
  Company Number: US-PURDUE-USA-2020-0176548

PATIENT
  Sex: Male

DRUGS (3)
  1. OXYCODONE HCL TABLETS (RHODES 91-490) [Suspect]
     Active Substance: OXYCODONE HYDROCHLORIDE
     Indication: PRODUCT USED FOR UNKNOWN INDICATION
     Dosage: UNK
     Route: 048
  2. OXYIR [Suspect]
     Active Substance: OXYCODONE HYDROCHLORIDE
     Indication: PRODUCT USED FOR UNKNOWN INDICATION
     Dosage: UNK
     Route: 065
  3. OXYCONTIN [Suspect]
     Active Substance: OXYCODONE HYDROCHLORIDE
     Indication: PAIN
     Dosage: UNK
     Route: 048

REACTIONS (22)
  - Diarrhoea [Unknown]
  - Pain [Unknown]
  - Nervous system disorder [Unknown]
  - Constipation [Unknown]
  - Dizziness [Unknown]
  - Memory impairment [None]
  - Diabetes mellitus [Unknown]
  - Headache [Unknown]
  - Drug dependence [Unknown]
  - Neuropathy peripheral [Unknown]
  - Abdominal pain upper [Unknown]
  - Disturbance in attention [Unknown]
  - Emotional distress [Unknown]
  - Erectile dysfunction [Unknown]
  - Infertility [Unknown]
  - Nephrolithiasis [Unknown]
  - Hypoxia [Unknown]
  - Heart rate increased [Unknown]
  - Depression [Unknown]
  - Anxiety [Unknown]
  - Nausea [Unknown]
  - Sleep disorder [Unknown]
